FAERS Safety Report 15947315 (Version 2)
Quarter: 2019Q2

REPORT INFORMATION
  Report Type: Spontaneous
  Country: US (occurrence: US)
  Receive Date: 20190211
  Receipt Date: 20190415
  Transmission Date: 20190711
  Serious: Yes (Other)
  Sender: FDA-Public Use
  Company Number: US-ASTRAZENECA-2019SE12047

PATIENT
  Age: 26575 Day
  Sex: Female
  Weight: 73.5 kg

DRUGS (18)
  1. SIMVASTATIN. [Concomitant]
     Active Substance: SIMVASTATIN
     Indication: BLOOD CHOLESTEROL
  2. OFLOXACIN. [Concomitant]
     Active Substance: OFLOXACIN
  3. LOPID [Concomitant]
     Active Substance: GEMFIBROZIL
  4. LISINOPRIL. [Concomitant]
     Active Substance: LISINOPRIL
  5. KETOROLAC [Concomitant]
     Active Substance: KETOROLAC\KETOROLAC TROMETHAMINE
     Indication: HYPERTENSION
  6. NEXIUM [Suspect]
     Active Substance: ESOMEPRAZOLE MAGNESIUM
     Indication: GASTROOESOPHAGEAL REFLUX DISEASE
     Route: 048
     Dates: start: 2001, end: 2006
  7. OMEPRAZOLE. [Suspect]
     Active Substance: OMEPRAZOLE
     Indication: GASTROOESOPHAGEAL REFLUX DISEASE
     Route: 065
  8. PREDNISOLONE. [Concomitant]
     Active Substance: PREDNISOLONE
  9. CALTRATE [Concomitant]
     Active Substance: CALCIUM CARBONATE
  10. OMEPRAZOLE. [Suspect]
     Active Substance: OMEPRAZOLE
     Indication: GASTROOESOPHAGEAL REFLUX DISEASE
     Route: 065
  11. LEVAQUIN [Concomitant]
     Active Substance: LEVOFLOXACIN
  12. PROZAC [Concomitant]
     Active Substance: FLUOXETINE HYDROCHLORIDE
     Indication: ANXIETY
  13. TUMS [Concomitant]
     Active Substance: CALCIUM CARBONATE
  14. ASPIRIN. [Concomitant]
     Active Substance: ASPIRIN
  15. PEPCID [Concomitant]
     Active Substance: FAMOTIDINE
  16. NEXIUM [Suspect]
     Active Substance: ESOMEPRAZOLE MAGNESIUM
     Indication: GASTROOESOPHAGEAL REFLUX DISEASE
     Route: 048
     Dates: start: 2001, end: 2006
  17. GATIFLOXACIN. [Concomitant]
     Active Substance: GATIFLOXACIN
  18. CALCIUM [Concomitant]
     Active Substance: CALCIUM

REACTIONS (1)
  - Chronic kidney disease [Not Recovered/Not Resolved]

NARRATIVE: CASE EVENT DATE: 20170802
